FAERS Safety Report 21063568 (Version 2)
Quarter: 2022Q3

REPORT INFORMATION
  Report Type: Spontaneous
  Country: JP (occurrence: JP)
  Receive Date: 20220711
  Receipt Date: 20220715
  Transmission Date: 20221026
  Serious: Yes (Hospitalization)
  Sender: FDA-Public Use
  Company Number: JP-CHUGAI-2022025768

PATIENT
  Sex: Female

DRUGS (3)
  1. PERJETA [Suspect]
     Active Substance: PERTUZUMAB
     Indication: Breast cancer
     Dosage: 840 MILLIGRAM, SINGLE
     Route: 041
     Dates: start: 20220616, end: 20220616
  2. HERCEPTIN [Suspect]
     Active Substance: TRASTUZUMAB
     Indication: Breast cancer
     Dosage: 8 MILLIGRAM/KILOGRAM, SINGLE
     Route: 041
     Dates: start: 20220616, end: 20220616
  3. DOCETAXEL [Suspect]
     Active Substance: DOCETAXEL
     Indication: Breast cancer
     Dosage: UNK, SINGLE
     Route: 041
     Dates: start: 20220616, end: 20220616

REACTIONS (2)
  - Pericardial effusion [Recovered/Resolved]
  - Brain natriuretic peptide increased [Recovered/Resolved]
